FAERS Safety Report 8779590 (Version 2)
Quarter: 2012Q4

REPORT INFORMATION
  Report Type: 
  Country: US (occurrence: US)
  Receive Date: 20120912
  Receipt Date: 20121005
  Transmission Date: 20130627
  Serious: Yes (Other)
  Sender: FDA-Public Use
  Company Number: US-BRISTOL-MYERS SQUIBB COMPANY-16922965

PATIENT
  Age: 25 Year
  Sex: Male

DRUGS (2)
  1. ABILIFY TABS [Suspect]
     Indication: SCHIZOPHRENIA
     Dosage: Dose increased to 15mg/daily(2B70764,Feb2015),30mg once daily on 30Aug2012(1/2 tabs,2C80482,Feb2015)
  2. LAMOTRIGINE [Suspect]

REACTIONS (4)
  - Delusion [Unknown]
  - Thinking abnormal [Unknown]
  - Sleep disorder [Unknown]
  - Wrong technique in drug usage process [Unknown]
